FAERS Safety Report 8430187-5 (Version None)
Quarter: 2012Q2

REPORT INFORMATION
  Report Type: 
  Country: None (occurrence: None)
  Receive Date: 20120612
  Receipt Date: 20120604
  Transmission Date: 20120825
  Serious: Yes (Other)
  Sender: FDA-Public Use
  Company Number: CA-ROCHE-GNE314169

PATIENT
  Sex: Female

DRUGS (7)
  1. THEOPHYLLINE [Concomitant]
     Indication: PRODUCT USED FOR UNKNOWN INDICATION
  2. ADVAIR DISKUS 100/50 [Concomitant]
     Indication: PRODUCT USED FOR UNKNOWN INDICATION
  3. PREDNISONE [Concomitant]
     Dates: end: 20120604
  4. MOXIFLOXACIN HYDROCHLORIDE [Concomitant]
     Dates: end: 20120604
  5. ALVESCO [Concomitant]
     Indication: PRODUCT USED FOR UNKNOWN INDICATION
  6. SINGULAIR [Concomitant]
     Indication: PRODUCT USED FOR UNKNOWN INDICATION
  7. XOLAIR [Suspect]
     Indication: ASTHMA
     Route: 058
     Dates: start: 20100607

REACTIONS (9)
  - COUGH [None]
  - INFLUENZA [None]
  - HYPOTENSION [None]
  - CHOKING [None]
  - PALLOR [None]
  - MALAISE [None]
  - FATIGUE [None]
  - NASAL CONGESTION [None]
  - DIZZINESS [None]
